FAERS Safety Report 6315090-9 (Version None)
Quarter: 2009Q3

REPORT INFORMATION
  Report Type: 
  Country: None (occurrence: None)
  Receive Date: 20090819
  Receipt Date: 20090710
  Transmission Date: 20100115
  Serious: Yes (Other)
  Sender: FDA-Public Use
  Company Number: JP-AMGEN-US352478

PATIENT
  Sex: Female
  Weight: 54 kg

DRUGS (7)
  1. ENBREL [Suspect]
     Indication: RHEUMATOID ARTHRITIS
     Dosage: RESUMED AT UNSPECIFIED DOSE
     Dates: start: 20050729
  2. BENET [Concomitant]
  3. LOXONIN [Concomitant]
     Indication: RHEUMATOID ARTHRITIS
     Route: 048
     Dates: start: 19980101, end: 20080912
  4. RHEUMATREX [Concomitant]
     Indication: RHEUMATOID ARTHRITIS
     Dosage: UNKNOWN DOSAGE
     Route: 048
     Dates: start: 19880101, end: 20080711
  5. FOLIAMIN [Concomitant]
     Route: 048
     Dates: start: 19980101, end: 20080711
  6. TAKEPRON [Concomitant]
     Indication: PROPHYLAXIS AGAINST GASTROINTESTINAL ULCER
     Route: 048
     Dates: start: 19880101
  7. PREDNISOLONE [Concomitant]
     Indication: RHEUMATOID ARTHRITIS
     Route: 048
     Dates: start: 19880101

REACTIONS (5)
  - ARRHYTHMIA [None]
  - ASCITES [None]
  - KNEE ARTHROPLASTY [None]
  - MALAISE [None]
  - PYREXIA [None]
